FAERS Safety Report 7880756-6 (Version None)
Quarter: 2011Q4

REPORT INFORMATION
  Report Type: 
  Country: None (occurrence: None)
  Receive Date: 20111101
  Receipt Date: 20111024
  Transmission Date: 20120403
  Serious: No
  Sender: FDA-Public Use
  Company Number: US-B.I. PHARMACEUTICALS,INC./RIDGEFIELD-2011-BP-22387BP

PATIENT
  Age: 62 Year
  Sex: Female

DRUGS (11)
  1. ASPIRIN [Concomitant]
     Indication: PROPHYLAXIS
     Dosage: 81 MG
     Route: 048
  2. VIT D3 [Concomitant]
     Indication: VITAMIN SUPPLEMENTATION
     Dosage: 2000 U
     Route: 048
  3. CLONAZEPAM [Concomitant]
     Indication: CONVULSION
     Dosage: 1 MG
     Route: 048
  4. PRADAXA [Suspect]
     Indication: POLYMEDICATION
  5. AMIODARONE HCL [Concomitant]
     Indication: ATRIAL FIBRILLATION
     Dosage: 200 MG
     Route: 048
  6. TOPROL-XL [Concomitant]
     Indication: HYPERTENSION
     Dosage: 100 MG
     Route: 048
  7. LASIX [Concomitant]
     Indication: HYPERTENSION
     Dosage: 20 MG
     Route: 048
  8. LISINOPRIL [Concomitant]
     Indication: HYPERTENSION
     Dosage: 2.5 MG
     Route: 048
  9. PRADAXA [Suspect]
     Indication: ATRIAL FIBRILLATION
     Dosage: 300 MG
     Route: 048
     Dates: start: 20110701, end: 20110801
  10. LIMBREL [Concomitant]
     Indication: ARTHRALGIA
     Dosage: 1000 MG
     Route: 048
  11. POTASSIUM CL [Concomitant]
     Indication: MINERAL SUPPLEMENTATION
     Dosage: 20 MEQ
     Route: 048

REACTIONS (5)
  - HAEMATOMA [None]
  - NAIL BED BLEEDING [None]
  - COAGULATION TIME PROLONGED [None]
  - HAEMORRHAGE [None]
  - JOINT SWELLING [None]
